FAERS Safety Report 4347359-1 (Version None)
Quarter: 2004Q2

REPORT INFORMATION
  Report Type: 
  Country: None (occurrence: None)
  Receive Date: 20040422
  Receipt Date: 20030409
  Transmission Date: 20050107
  Serious: Yes (Other)
  Sender: FDA-Public Use
  Company Number: US-SHR-03-004440

PATIENT
  Age: 60 Year
  Sex: Male

DRUGS (2)
  1. BETAPACE AF [Suspect]
     Indication: ATRIAL FIBRILLATION
     Dosage: 120 MG, 2X/DAY, ORAL
     Route: 048
     Dates: start: 20000101
  2. WELCHOL [Concomitant]

REACTIONS (3)
  - ATRIAL FIBRILLATION [None]
  - DYSPEPSIA [None]
  - REGURGITATION OF FOOD [None]
